FAERS Safety Report 9552767 (Version 1)
Quarter: 2013Q3

REPORT INFORMATION
  Report Type: Spontaneous
  Country: US (occurrence: US)
  Receive Date: 20130925
  Receipt Date: 20130925
  Transmission Date: 20140515
  Serious: Yes (Other)
  Sender: FDA-Public Use
  Company Number: US-NAPPMUNDI-USA-2013-0098554

PATIENT
  Age: 21 Year
  Sex: Female

DRUGS (6)
  1. MORPHINE SULFATE (SIMILAR TO NDA 19-516) [Suspect]
     Indication: DRUG ABUSE
  2. FENTANYL [Suspect]
     Indication: DRUG ABUSE
  3. VICODIN [Suspect]
     Indication: DRUG ABUSE
  4. XANAX [Suspect]
     Indication: DRUG ABUSE
  5. KLONOPIN [Suspect]
     Indication: DRUG ABUSE
  6. PERCOCET /00867901/ [Suspect]
     Indication: DRUG ABUSE

REACTIONS (2)
  - Drug dependence [Recovering/Resolving]
  - Drug abuse [Recovering/Resolving]
